FAERS Safety Report 9719116 (Version 2)
Quarter: 2013Q4

REPORT INFORMATION
  Report Type: Spontaneous
  Country: US (occurrence: US)
  Receive Date: 20131127
  Receipt Date: 20131227
  Transmission Date: 20140711
  Serious: Yes (Hospitalization, Other)
  Sender: FDA-Public Use
  Company Number: CHPA2013US017421

PATIENT
  Age: 75 Year
  Sex: Male

DRUGS (8)
  1. PRIVATE LABEL STRENGTH UNKNOWN [Suspect]
     Indication: SMOKING CESSATION THERAPY
     Dosage: 1 DF, QD
     Route: 062
  2. LOVASTATIN [Concomitant]
     Dosage: 40 MG, UNK
  3. LISINOPRIL [Concomitant]
     Indication: BLOOD PRESSURE ABNORMAL
     Dosage: 10 MG, UNK
  4. GABAPENTIN [Concomitant]
     Dosage: 300 MG, UNK
  5. WARFARIN [Concomitant]
     Dosage: 5 MG, AT NIGHT
  6. OMEPRAZOLE [Concomitant]
     Dosage: 20 MG, UNK
  7. DIAZEPAM [Concomitant]
     Dosage: 10 MG, PRN
  8. LASIX [Concomitant]
     Dosage: 40 MG, BID

REACTIONS (4)
  - Device failure [Recovered/Resolved]
  - Bladder disorder [Not Recovered/Not Resolved]
  - Depression [Not Recovered/Not Resolved]
  - Arthritis [Recovered/Resolved]
